FAERS Safety Report 10906121 (Version 1)
Quarter: 2015Q1

REPORT INFORMATION
  Report Type: Spontaneous
  Country: US (occurrence: US)
  Receive Date: 20150311
  Receipt Date: 20150311
  Transmission Date: 20150721
  Serious: Yes (Death, Hospitalization, Other)
  Sender: FDA-Public Use
  Company Number: US-GLAXOSMITHKLINE-US2015GSK031548

PATIENT
  Age: 0 Year
  Sex: Female
  Weight: 2.13 kg

DRUGS (1)
  1. ZOFRAN ODT [Suspect]
     Active Substance: ONDANSETRON HYDROCHLORIDE
     Indication: VOMITING
     Dosage: 8 MG, TID
     Route: 064
     Dates: start: 200603

REACTIONS (6)
  - Low birth weight baby [Not Recovered/Not Resolved]
  - Death neonatal [Fatal]
  - Congenital diaphragmatic hernia [Not Recovered/Not Resolved]
  - Extracorporeal membrane oxygenation [Fatal]
  - Hernia diaphragmatic repair [Fatal]
  - Foetal exposure during pregnancy [Unknown]

NARRATIVE: CASE EVENT DATE: 200603
